FAERS Safety Report 5442957-6 (Version None)
Quarter: 2007Q3

REPORT INFORMATION
  Report Type: 
  Country: None (occurrence: None)
  Receive Date: 20070905
  Receipt Date: 20070830
  Transmission Date: 20080115
  Serious: Yes (Hospitalization)
  Sender: FDA-Public Use
  Company Number: US-RB-007291-07

PATIENT
  Sex: Female

DRUGS (8)
  1. ZOFRAN [Concomitant]
     Dosage: DOSE UNKNOWN
     Route: 048
  2. TERBUTALINE SULFATE [Concomitant]
     Dosage: DOSE UNKNOWN
     Route: 058
  3. PHENERGAN HCL [Concomitant]
     Dosage: PRN FOR NAUSEA, DOSE UNKNOWN
     Route: 042
  4. FLAGYL [Concomitant]
     Dosage: DOSE UNKNOWN
     Route: 048
  5. PROTONIX [Concomitant]
     Dosage: DOSE UNKNOWN
     Route: 042
  6. FOLIC ACID [Concomitant]
     Dosage: DOSE UNKNOWN
     Route: 042
  7. MULTI-VITAMIN [Concomitant]
     Indication: PREGNANCY
     Dosage: DOSE UNKNOWN
     Route: 042
  8. SUBUTEX [Suspect]
     Route: 060

REACTIONS (2)
  - DRUG EXPOSURE DURING PREGNANCY [None]
  - PREMATURE LABOUR [None]
